FAERS Safety Report 5488104-6 (Version None)
Quarter: 2007Q3

REPORT INFORMATION
  Report Type: 
  Country: None (occurrence: None)
  Receive Date: 20070927
  Receipt Date: 20070614
  Transmission Date: 20080115
  Serious: No
  Sender: FDA-Public Use
  Company Number: US-CVT-070094

PATIENT
  Sex: Male

DRUGS (1)
  1. RANEXA [Suspect]
     Indication: ANGINA UNSTABLE
     Dosage: 500 MG, BID, ORAL
     Route: 048
     Dates: start: 20070326, end: 20070404

REACTIONS (4)
  - CHEST PAIN [None]
  - GASTROINTESTINAL PAIN [None]
  - NAUSEA [None]
  - VOMITING [None]
